FAERS Safety Report 23986827 (Version 2)
Quarter: 2024Q3

REPORT INFORMATION
  Report Type: Report from Study
  Country: US (occurrence: US)
  Receive Date: 20240618
  Receipt Date: 20240826
  Transmission Date: 20241016
  Serious: Yes (Hospitalization)
  Sender: PFIZER
  Company Number: US-PFIZER INC-202400193257

PATIENT
  Age: 71 Year
  Sex: Female

DRUGS (3)
  1. TUKYSA [Suspect]
     Active Substance: TUCATINIB
     Dosage: 150 MG
     Dates: start: 20240522
  2. TUKYSA [Suspect]
     Active Substance: TUCATINIB
     Dosage: 300MG TWICE DAILY
     Dates: start: 20240522
  3. ONDANSETRON [Suspect]
     Active Substance: ONDANSETRON
     Dosage: 8MG, 1 TABLET 3 TIMES DAILY AS NEEDED

REACTIONS (4)
  - Dehydration [Unknown]
  - Urinary tract infection [Unknown]
  - Epistaxis [Unknown]
  - Product dose omission issue [Unknown]

NARRATIVE: CASE EVENT DATE: 20240606
